APPROVED DRUG PRODUCT: GABITRIL
Active Ingredient: TIAGABINE HYDROCHLORIDE
Strength: 6MG
Dosage Form/Route: TABLET;ORAL
Application: N020646 | Product #006
Applicant: CEPHALON INC
Approved: Nov 29, 2005 | RLD: No | RS: No | Type: DISCN